FAERS Safety Report 9715562 (Version 1)
Quarter: 2013Q4

REPORT INFORMATION
  Report Type: Spontaneous
  Country: US (occurrence: US)
  Receive Date: 20131127
  Receipt Date: 20131127
  Transmission Date: 20140711
  Serious: Yes (Hospitalization)
  Sender: FDA-Public Use
  Company Number: US-BIOGENIDEC-2013BI114408

PATIENT
  Age: 49 Year
  Sex: Female

DRUGS (1)
  1. TYSABRI [Suspect]
     Indication: MULTIPLE SCLEROSIS
     Route: 042
     Dates: start: 20061214

REACTIONS (5)
  - Abdominal pain upper [Recovered/Resolved]
  - Limb injury [Recovered/Resolved]
  - Influenza like illness [Recovered/Resolved]
  - Graft haemorrhage [Recovered/Resolved]
  - Skin graft [Recovered/Resolved]
